FAERS Safety Report 12923647 (Version 5)
Quarter: 2017Q3

REPORT INFORMATION
  Report Type: Spontaneous
  Country: US (occurrence: US)
  Receive Date: 20161109
  Receipt Date: 20170914
  Transmission Date: 20171127
  Serious: Yes (Hospitalization, Other)
  Sender: FDA-Public Use
  Company Number: US-PFIZER INC-2016351188

PATIENT
  Age: 71 Year
  Sex: Female
  Weight: 64.86 kg

DRUGS (17)
  1. BIOTIN [Concomitant]
     Active Substance: BIOTIN
     Indication: SKIN DISORDER
     Dosage: 5000 UG, DAILY
     Route: 048
     Dates: start: 20160602
  2. ATIVAN [Concomitant]
     Active Substance: LORAZEPAM
     Dosage: UNK
     Dates: start: 20170810
  3. MEVACOR [Concomitant]
     Active Substance: LOVASTATIN
     Dosage: 20 MG, 1X/DAY, (EVERY NIGHT AT BEDTIME)
     Route: 048
     Dates: start: 20170518
  4. COUMADIN [Concomitant]
     Active Substance: WARFARIN SODIUM
     Dosage: UNK
     Dates: start: 20170822
  5. PRILOSEC [Concomitant]
     Active Substance: OMEPRAZOLE MAGNESIUM
     Indication: GASTROOESOPHAGEAL REFLUX DISEASE
     Dosage: 20 MG, DAILY
     Route: 048
     Dates: start: 20170518
  6. LYRICA [Suspect]
     Active Substance: PREGABALIN
     Indication: NEURALGIA
     Dosage: 75 MG, 2X/DAY
     Route: 048
  7. CORDARONE [Concomitant]
     Active Substance: AMIODARONE HYDROCHLORIDE
     Indication: ATRIAL FIBRILLATION
     Dosage: 100 MG, DAILY
     Route: 048
     Dates: start: 20170518
  8. COUMADIN [Concomitant]
     Active Substance: WARFARIN SODIUM
     Dosage: 5 MG, ALTERNATE DAY (TAKE 1 TABLET (5 MG) MON, WED, AND FRI)
  9. ROPINIROLE. [Concomitant]
     Active Substance: ROPINIROLE
     Indication: MUSCLE SPASMS
     Dosage: 5 MG, 1X/DAY (AT BEDTIME)
     Route: 048
  10. RESTASIS [Concomitant]
     Active Substance: CYCLOSPORINE
     Indication: EYE DISORDER
     Dosage: 2 GTT, DAILY
     Route: 047
     Dates: start: 20131218
  11. NITROSTAT [Concomitant]
     Active Substance: NITROGLYCERIN
     Indication: CHEST PAIN
     Dosage: 1 DF, AS NEEDED (PLACE 1 TABLET (0.4 MG TOTAL) EVERY 5 MINUTES)
     Route: 060
     Dates: start: 20170518
  12. IMODIUM A-D [Concomitant]
     Active Substance: LOPERAMIDE HYDROCHLORIDE
     Dosage: UNK
     Dates: start: 20170518
  13. TENORMIN [Concomitant]
     Active Substance: ATENOLOL
     Indication: BLOOD PRESSURE ABNORMAL
     Dosage: 12.5 MG, DAILY
     Route: 048
     Dates: end: 20170825
  14. COUMADIN [Concomitant]
     Active Substance: WARFARIN SODIUM
     Dosage: 2.5 MG, ALTERNATE DAY (TUES., THUR., SAT., AND SUN)
  15. TENORMIN [Concomitant]
     Active Substance: ATENOLOL
     Indication: CARDIAC DISORDER
  16. REQUIP [Concomitant]
     Active Substance: ROPINIROLE HYDROCHLORIDE
     Dosage: 0.5 MG, 1X/DAY, (EVERY NIGHT AT BEDTIME)
     Route: 048
     Dates: start: 20170523
  17. ROPINIROLE. [Concomitant]
     Active Substance: ROPINIROLE
     Indication: LIMB DISCOMFORT
     Dosage: 0.5 MG, 1X/DAY (AT BEDTIME)
     Route: 048
     Dates: start: 20170824

REACTIONS (6)
  - Muscle spasms [Not Recovered/Not Resolved]
  - Myalgia [Not Recovered/Not Resolved]
  - Hypoaesthesia [Not Recovered/Not Resolved]
  - Gait inability [Unknown]
  - Limb discomfort [Not Recovered/Not Resolved]
  - Restless legs syndrome [Recovered/Resolved]

NARRATIVE: CASE EVENT DATE: 2014
